FAERS Safety Report 6569092-8 (Version None)
Quarter: 2010Q1

REPORT INFORMATION
  Report Type: 
  Country: None (occurrence: None)
  Receive Date: 20100203
  Receipt Date: 20100120
  Transmission Date: 20100710
  Serious: Yes (Other)
  Sender: FDA-Public Use
  Company Number: CA-MEDIMMUNE-MEDI-0009988

PATIENT
  Sex: Male
  Weight: 1.13 kg

DRUGS (5)
  1. SYNAGIS [Suspect]
     Dates: start: 20091105, end: 20091126
  2. SYNAGIS [Suspect]
     Dates: start: 20100105
  3. HALIBORANGE [Concomitant]
     Route: 048
  4. CAFFEINE [Concomitant]
  5. DROR [Concomitant]
     Route: 048

REACTIONS (2)
  - APNOEA [None]
  - BODY TEMPERATURE FLUCTUATION [None]
